FAERS Safety Report 22337140 (Version 1)
Quarter: 2023Q2

REPORT INFORMATION
  Report Type: Spontaneous
  Country: US (occurrence: None)
  Receive Date: 20230518
  Receipt Date: 20230518
  Transmission Date: 20230721
  Serious: No
  Sender: FDA-Public Use
  Company Number: US-ROCHE-3318516

PATIENT
  Age: 84 Year
  Sex: Female
  Weight: 72.64 kg

DRUGS (23)
  1. ACTEMRA [Suspect]
     Active Substance: TOCILIZUMAB
     Indication: Giant cell arteritis
     Route: 058
     Dates: start: 202208
  2. ACTEMRA [Suspect]
     Active Substance: TOCILIZUMAB
  3. BENADRYL [Concomitant]
     Active Substance: DIPHENHYDRAMINE HYDROCHLORIDE
     Dosage: TAKES PRIOR TO ACTEMRA DOSE WEEKLY
     Route: 048
  4. VOLTAREN [Concomitant]
     Active Substance: DICLOFENAC SODIUM
     Indication: Back pain
     Route: 061
  5. PROTONIX [Concomitant]
     Active Substance: PANTOPRAZOLE SODIUM
     Route: 048
  6. KENALOG [Concomitant]
     Active Substance: TRIAMCINOLONE ACETONIDE
     Indication: Pruritus
     Route: 061
  7. NITROGLYCERIN [Concomitant]
     Active Substance: NITROGLYCERIN
     Indication: Chest pain
     Route: 060
  8. TIMOLOL [Concomitant]
     Active Substance: TIMOLOL
     Dosage: IN BOTH EYES
  9. LATANOPROST [Concomitant]
     Active Substance: LATANOPROST
     Dosage: 0.005 UNIT NOT REPORTED ?LEFT EYE
  10. MUCINEX [Concomitant]
     Active Substance: GUAIFENESIN
     Indication: Cough
     Dosage: 1 PILL EVERY 12 HOURS AS NEEDED
     Route: 048
  11. PEPCID [Concomitant]
     Active Substance: FAMOTIDINE
     Indication: Gastrooesophageal reflux disease
     Route: 048
  12. VITAMIN B12 [Concomitant]
     Active Substance: CYANOCOBALAMIN
     Dosage: EVERY MONDAY, WEDNESDAY AND FRIDAY
     Route: 048
  13. VITAMIN B2 [Concomitant]
     Active Substance: RIBOFLAVIN
     Indication: Migraine
     Route: 048
  14. VITAMIN B2 [Concomitant]
     Active Substance: RIBOFLAVIN
     Indication: Headache
  15. SANCTURA [Concomitant]
     Active Substance: TROSPIUM CHLORIDE
     Indication: Bladder spasm
     Route: 048
  16. LEVOTHYROXINE [Concomitant]
     Active Substance: LEVOTHYROXINE
     Indication: Hypothyroidism
     Route: 048
  17. ELIQUIS [Concomitant]
     Active Substance: APIXABAN
     Indication: Anticoagulant therapy
     Route: 048
  18. CLARITIN [Concomitant]
     Active Substance: LORATADINE
     Indication: Seasonal allergy
     Route: 048
  19. CALTRATE [Concomitant]
     Active Substance: CALCIUM CARBONATE
     Route: 048
  20. COENZYME Q10 [Concomitant]
     Active Substance: DIETARY SUPPLEMENT\UBIDECARENONE
     Route: 048
  21. MAGNESIUM GLYCINATE [Concomitant]
     Active Substance: MAGNESIUM GLYCINATE
     Indication: Muscle spasms
     Dosage: EVERY BEDTIME ORAL
     Route: 048
  22. MIRALAX [Concomitant]
     Active Substance: POLYETHYLENE GLYCOL 3350
     Indication: Constipation
     Dosage: 1 SCOOP DISSOLVED IN WATER EVERY MORNING
     Route: 048
  23. COLACE [Concomitant]
     Active Substance: DOCUSATE SODIUM
     Indication: Constipation
     Dosage: TAKES 2
     Route: 048

REACTIONS (4)
  - Accidental exposure to product [Unknown]
  - Wrong technique in product usage process [Unknown]
  - Product quality issue [Unknown]
  - No adverse event [Unknown]

NARRATIVE: CASE EVENT DATE: 20220801
